FAERS Safety Report 18440837 (Version 1)
Quarter: 2020Q4

REPORT INFORMATION
  Report Type: Spontaneous
  Country: US (occurrence: US)
  Receive Date: 20201029
  Receipt Date: 20201029
  Transmission Date: 20210114
  Serious: Yes (Hospitalization)
  Sender: FDA-Public Use
  Company Number: None

PATIENT
  Age: 16 Year
  Sex: Male

DRUGS (4)
  1. METHYLPHENID [Concomitant]
     Active Substance: METHYLPHENIDATE
  2. GUANFACINE. [Concomitant]
     Active Substance: GUANFACINE
  3. HUMATROPE [Concomitant]
     Active Substance: SOMATROPIN
  4. NORDITROPIN [Suspect]
     Active Substance: SOMATROPIN
     Route: 058
     Dates: start: 20200125

REACTIONS (1)
  - Therapy interrupted [None]

NARRATIVE: CASE EVENT DATE: 20201014
